FAERS Safety Report 5650201-X (Version None)
Quarter: 2008Q1

REPORT INFORMATION
  Report Type: 
  Country: None (occurrence: None)
  Receive Date: 20080219
  Receipt Date: 20080205
  Transmission Date: 20080703
  Serious: Yes (Hospitalization)
  Sender: FDA-Public Use
  Company Number: THYM-1000599

PATIENT
  Age: 44 Year
  Sex: Male
  Weight: 80 kg

DRUGS (7)
  1. THYMOGLOBULIN [Suspect]
     Indication: HEART TRANSPLANT REJECTION
     Dosage: 1.5 MG/KG,QD,INTRAVENOUS
     Route: 042
     Dates: start: 20080123, end: 20080127
  2. CORTICOSTEROID NOS (CORTICOSTEROID NOS) [Concomitant]
  3. TACROLIMUS [Concomitant]
  4. MYCOPHENOLATE MOFETIL [Concomitant]
  5. GANCICLOVIR [Concomitant]
  6. LASIX [Concomitant]
  7. FENISTIL (DIMETINDENE MALEATE) [Concomitant]

REACTIONS (3)
  - BLOOD CREATININE INCREASED [None]
  - CONDITION AGGRAVATED [None]
  - SERUM SICKNESS [None]
